FAERS Safety Report 9997604 (Version 2)
Quarter: 2014Q2

REPORT INFORMATION
  Report Type: Spontaneous
  Country: US (occurrence: US)
  Receive Date: 20140311
  Receipt Date: 20140411
  Transmission Date: 20141212
  Serious: No
  Sender: FDA-Public Use
  Company Number: US-009507513-1403USA001344

PATIENT
  Sex: 0

DRUGS (1)
  1. ZIOPTAN [Suspect]
     Dosage: 2 GTT, HS
     Route: 047
     Dates: start: 20130402

REACTIONS (4)
  - Expired product administered [Unknown]
  - Incorrect product storage [Unknown]
  - No adverse event [Unknown]
  - Drug dispensing error [Unknown]
